FAERS Safety Report 8045850-8 (Version None)
Quarter: 2012Q1

REPORT INFORMATION
  Report Type: 
  Country: None (occurrence: None)
  Receive Date: 20120113
  Receipt Date: 20120111
  Transmission Date: 20120608
  Serious: Yes (Other)
  Sender: FDA-Public Use
  Company Number: CHPA2012EG000874

PATIENT
  Sex: Female

DRUGS (3)
  1. FORADIL                                 /DEN/ [Concomitant]
     Dosage: UNK, UNK
  2. BUDESONIDE [Concomitant]
     Dosage: UNK, UNK
  3. OTRIVIN [Suspect]
     Indication: HYPERSENSITIVITY
     Dosage: UNK, MORE THAN THREE TIMES DAILY
     Route: 045

REACTIONS (4)
  - NASAL MUCOSAL HYPERTROPHY [None]
  - INCORRECT DRUG ADMINISTRATION DURATION [None]
  - OVERDOSE [None]
  - OFF LABEL USE [None]
